APPROVED DRUG PRODUCT: PROPOXYPHENE NAPSYLATE AND ACETAMINOPHEN
Active Ingredient: ACETAMINOPHEN; PROPOXYPHENE NAPSYLATE
Strength: 325MG;100MG
Dosage Form/Route: TABLET;ORAL
Application: A076743 | Product #001
Applicant: CORNERSTONE BIOPHARMA INC
Approved: May 7, 2004 | RLD: No | RS: No | Type: DISCN